FAERS Safety Report 20693452 (Version 1)
Quarter: 2022Q2

REPORT INFORMATION
  Report Type: Spontaneous
  Country: US (occurrence: US)
  Receive Date: 20220410
  Receipt Date: 20220410
  Transmission Date: 20220721
  Serious: No
  Sender: FDA-Public Use
  Company Number: US-BIOGEN-2022BI01111695

PATIENT
  Age: 79 Year
  Sex: Male

DRUGS (1)
  1. ADUHELM [Suspect]
     Active Substance: ADUCANUMAB-AVWA
     Indication: Product used for unknown indication
     Route: 065

REACTIONS (7)
  - Epistaxis [Unknown]
  - Head injury [Unknown]
  - Scratch [Unknown]
  - Scleral haemorrhage [Unknown]
  - Eye contusion [Unknown]
  - Somnolence [Unknown]
  - Fall [Recovered/Resolved]

NARRATIVE: CASE EVENT DATE: 20220326
